FAERS Safety Report 7869634-6 (Version None)
Quarter: 2011Q4

REPORT INFORMATION
  Report Type: 
  Country: None (occurrence: None)
  Receive Date: 20111007
  Receipt Date: 20111007
  Transmission Date: 20120403
  Serious: No
  Sender: FDA-Public Use
  Company Number: None

PATIENT
  Sex: Female
  Weight: 181.8 kg

DRUGS (1)
  1. CHENODIOL [Suspect]
     Indication: CHOLELITHIASIS
     Dosage: 1750MG (7X250MG TABLETS) ONCE DAILY BY MOUTH
     Route: 048
     Dates: start: 20110913, end: 20111004

REACTIONS (2)
  - VOMITING [None]
  - DIARRHOEA [None]
